FAERS Safety Report 18599964 (Version 1)
Quarter: 2020Q4

REPORT INFORMATION
  Report Type: Spontaneous
  Country: US (occurrence: US)
  Receive Date: 20201209
  Receipt Date: 20201209
  Transmission Date: 20210114
  Serious: Yes (Other)
  Sender: FDA-Public Use
  Company Number: None

PATIENT
  Age: 67 Year
  Weight: 108.86 kg

DRUGS (2)
  1. METFORMIN 599 [Suspect]
     Active Substance: METFORMIN HYDROCHLORIDE
  2. METFORMIN 500 [Suspect]
     Active Substance: METFORMIN HYDROCHLORIDE
     Indication: TYPE 2 DIABETES MELLITUS
     Dates: start: 20180201, end: 20200201

REACTIONS (1)
  - Splenic thrombosis [None]

NARRATIVE: CASE EVENT DATE: 20201125
